FAERS Safety Report 5390065-5 (Version None)
Quarter: 2007Q3

REPORT INFORMATION
  Report Type: 
  Country: None (occurrence: None)
  Receive Date: 20070718
  Receipt Date: 20070717
  Transmission Date: 20080115
  Serious: Yes (Other)
  Sender: FDA-Public Use
  Company Number: A0664208A

PATIENT
  Age: 67 Year
  Sex: Female

DRUGS (6)
  1. ALLI [Suspect]
     Route: 048
     Dates: start: 20070702
  2. LIPITOR [Concomitant]
  3. ACETAMINOPHEN [Concomitant]
  4. WELLBUTRIN XL [Concomitant]
  5. ETODOLAC [Concomitant]
  6. CALCIUM CHLORIDE [Concomitant]

REACTIONS (5)
  - ABNORMAL FAECES [None]
  - CONSTIPATION [None]
  - DEFAECATION URGENCY [None]
  - FAECAL INCONTINENCE [None]
  - FATIGUE [None]
